FAERS Safety Report 10004875 (Version 1)
Quarter: 2014Q1

REPORT INFORMATION
  Report Type: Spontaneous
  Country: US (occurrence: US)
  Receive Date: 20140312
  Receipt Date: 20140312
  Transmission Date: 20141002
  Serious: No
  Sender: FDA-Public Use
  Company Number: US-GILEAD-2012-0064658

PATIENT
  Age: 70 Year
  Sex: Male

DRUGS (3)
  1. LETAIRIS [Suspect]
     Indication: PRODUCT USED FOR UNKNOWN INDICATION
     Dosage: 10 MG, UNK
     Route: 048
     Dates: start: 20121019, end: 20121102
  2. LETAIRIS [Suspect]
     Dosage: 5 MG, UNK
     Route: 048
     Dates: start: 20110428
  3. LETAIRIS [Suspect]
     Dosage: 5 MG, UNK
     Route: 048

REACTIONS (3)
  - Confusional state [Recovered/Resolved]
  - Lethargy [Recovered/Resolved]
  - Oedema [Recovered/Resolved]
